FAERS Safety Report 21323865 (Version 1)
Quarter: 2022Q3

REPORT INFORMATION
  Report Type: Spontaneous
  Country: US (occurrence: US)
  Receive Date: 20220912
  Receipt Date: 20220912
  Transmission Date: 20221026
  Serious: Yes (Death, Hospitalization)
  Sender: FDA-Public Use
  Company Number: US-MYLANLABS-2022M1092397

PATIENT
  Age: 36 Year
  Sex: Male

DRUGS (5)
  1. FOMEPIZOLE [Suspect]
     Active Substance: FOMEPIZOLE
     Indication: Alcohol poisoning
     Dosage: UNK
     Route: 065
     Dates: start: 2020
  2. THIAMINE [Suspect]
     Active Substance: THIAMINE
     Indication: Alcohol poisoning
     Dosage: UNK
     Route: 065
     Dates: start: 2020
  3. FOLIC ACID [Suspect]
     Active Substance: FOLIC ACID
     Indication: Alcohol poisoning
     Dosage: UNK
     Route: 065
     Dates: start: 2020
  4. PYRIDOXINE [Suspect]
     Active Substance: PYRIDOXINE
     Indication: Alcohol poisoning
     Dosage: UNK
     Route: 065
     Dates: start: 2020
  5. SODIUM BICARBONATE [Suspect]
     Active Substance: SODIUM BICARBONATE
     Indication: Alcohol poisoning
     Dosage: UNK
     Route: 065
     Dates: start: 2020

REACTIONS (1)
  - Drug ineffective [Fatal]

NARRATIVE: CASE EVENT DATE: 20200101
